FAERS Safety Report 9719974 (Version 2)
Quarter: 2013Q4

REPORT INFORMATION
  Report Type: Report from Study
  Country: HU (occurrence: HU)
  Receive Date: 20131128
  Receipt Date: 20131128
  Transmission Date: 20140711
  Serious: Yes (Hospitalization, Other)
  Sender: FDA-Public Use
  Company Number: HU-ASTRAZENECA-2013SE77059

PATIENT
  Age: 21521 Day
  Sex: Male

DRUGS (11)
  1. AZD6140 [Suspect]
     Indication: CORONARY ARTERY DISEASE
     Route: 048
     Dates: start: 20120913, end: 20131011
  2. AZD6140 [Suspect]
     Indication: CORONARY ARTERY DISEASE
     Route: 048
     Dates: start: 20131029
  3. ASPIRIN [Suspect]
     Route: 048
     Dates: end: 20131011
  4. LISINOPRIL [Concomitant]
     Indication: HYPERTENSION
     Route: 048
  5. BISOPROLOL [Concomitant]
     Indication: MYOCARDIAL ISCHAEMIA
     Route: 048
  6. TRIMETAZIDINE [Concomitant]
     Indication: MYOCARDIAL ISCHAEMIA
     Route: 048
  7. PANTOPRASOL [Concomitant]
     Indication: PROPHYLAXIS AGAINST GASTROINTESTINAL ULCER
     Route: 048
  8. ROSUVASTATIN [Concomitant]
     Indication: MYOCARDIAL ISCHAEMIA
     Route: 048
  9. ROSUVASTATIN [Concomitant]
     Indication: HYPERCHOLESTEROLAEMIA
     Route: 048
  10. AMLODIPIN [Concomitant]
     Indication: HYPERTENSION
     Route: 048
  11. METFORMIN [Concomitant]
     Indication: TYPE 2 DIABETES MELLITUS
     Route: 048

REACTIONS (1)
  - Hiatus hernia [Recovered/Resolved]
